FAERS Safety Report 8103408-6 (Version None)
Quarter: 2012Q1

REPORT INFORMATION
  Report Type: 
  Country: None (occurrence: None)
  Receive Date: 20120127
  Receipt Date: 20120118
  Transmission Date: 20120608
  Serious: Yes (Hospitalization)
  Sender: FDA-Public Use
  Company Number: 2012SP003975

PATIENT
  Age: 90 Year
  Sex: Male

DRUGS (1)
  1. NASONEX [Suspect]
     Indication: SINUS DISORDER
     Dosage: PRN; INH
     Route: 055

REACTIONS (1)
  - DYSPNOEA [None]
